FAERS Safety Report 22935579 (Version 4)
Quarter: 2024Q1

REPORT INFORMATION
  Report Type: Report from Study
  Country: GB (occurrence: GB)
  Receive Date: 20230912
  Receipt Date: 20240109
  Transmission Date: 20240410
  Serious: Yes (Other)
  Sender: FDA-Public Use
  Company Number: GB-JNJFOC-20230902210

PATIENT
  Age: 50 Year
  Sex: Female
  Weight: 49 kg

DRUGS (17)
  1. AZITHROMYCIN [Suspect]
     Active Substance: AZITHROMYCIN
     Indication: Mycobacterium avium complex infection
     Dosage: UNK
     Route: 065
     Dates: start: 20210319, end: 20210503
  2. AZITHROMYCIN [Suspect]
     Active Substance: AZITHROMYCIN
     Dosage: 250 MILLIGRAM, QD
     Route: 065
     Dates: start: 20211118
  3. AZITHROMYCIN [Suspect]
     Active Substance: AZITHROMYCIN
     Dosage: 500 MILLIGRAM, QD
     Route: 065
     Dates: start: 20220525, end: 20220714
  4. AZITHROMYCIN [Suspect]
     Active Substance: AZITHROMYCIN
     Dosage: 250 MILLIGRAM
     Route: 065
     Dates: start: 20230310
  5. AZITHROMYCIN [Suspect]
     Active Substance: AZITHROMYCIN
     Dosage: 500 MILLIGRAM
     Route: 065
     Dates: start: 20230409
  6. AZITHROMYCIN [Suspect]
     Active Substance: AZITHROMYCIN
     Dosage: 500 MILLIGRAM, QD
     Route: 048
     Dates: start: 20230322, end: 20230906
  7. LINEZOLID [Suspect]
     Active Substance: LINEZOLID
     Indication: Mycobacterium avium complex infection
     Dosage: UNK
     Route: 065
  8. LINEZOLID [Suspect]
     Active Substance: LINEZOLID
     Dosage: 600 MILLIGRAM, QD
     Route: 048
     Dates: start: 20230907, end: 20231006
  9. LINEZOLID [Suspect]
     Active Substance: LINEZOLID
     Dosage: UNK
     Route: 065
     Dates: start: 20231106
  10. LINEZOLID [Suspect]
     Active Substance: LINEZOLID
     Dosage: 600 MILLIGRAM, QD
     Route: 048
     Dates: start: 20230908, end: 20231130
  11. LINEZOLID [Suspect]
     Active Substance: LINEZOLID
     Dosage: UNK
     Route: 065
     Dates: start: 20231108
  12. BEDAQUILINE [Suspect]
     Active Substance: BEDAQUILINE
     Indication: Mycobacterium avium complex infection
     Dosage: UNK
     Route: 048
     Dates: start: 20230310, end: 20230829
  13. BEDAQUILINE [Suspect]
     Active Substance: BEDAQUILINE
     Dosage: 200 MILLIGRAM, Q3W
     Route: 048
     Dates: start: 20230322, end: 20231006
  14. CLOFAZIMINE [Suspect]
     Active Substance: CLOFAZIMINE
     Indication: Mycobacterium avium complex infection
     Dosage: 100 MILLIGRAM
     Route: 065
     Dates: start: 20230310
  15. CLOFAZIMINE [Suspect]
     Active Substance: CLOFAZIMINE
     Dosage: 100 MILLIGRAM, QD
     Route: 048
     Dates: start: 20230322, end: 20231006
  16. CLOFAZIMINE [Suspect]
     Active Substance: CLOFAZIMINE
     Dosage: UNK
     Route: 065
     Dates: start: 20231106
  17. CLOFAZIMINE [Suspect]
     Active Substance: CLOFAZIMINE
     Dosage: UNK
     Route: 065
     Dates: start: 20231108, end: 20231130

REACTIONS (6)
  - Skin discolouration [Unknown]
  - Hepatotoxicity [Unknown]
  - Electrocardiogram QT prolonged [Unknown]
  - Hypoacusis [Unknown]
  - Diarrhoea [Unknown]
  - Hypertransaminasaemia [Recovered/Resolved]

NARRATIVE: CASE EVENT DATE: 20230817
